FAERS Safety Report 4673812-7 (Version None)
Quarter: 2005Q2

REPORT INFORMATION
  Report Type: 
  Country: None (occurrence: None)
  Receive Date: 20050523
  Receipt Date: 20040818
  Transmission Date: 20051028
  Serious: Yes (Other)
  Sender: FDA-Public Use
  Company Number: 10060217-C622118-01

PATIENT
  Age: 22 Year
  Sex: Female

DRUGS (3)
  1. LACTATED RINGER'S [Suspect]
     Indication: COLONOSCOPY
     Dosage: CONTINUOUS, IV
     Route: 042
     Dates: start: 20040818
  2. BAXTER INTERLINK CONTINUFLO ADMINISTRATION SET AND EXTENSION SET [Concomitant]
  3. 20 GAUGE CATHETER [Concomitant]

REACTIONS (3)
  - FEELING ABNORMAL [None]
  - PRURITUS GENERALISED [None]
  - RASH GENERALISED [None]
